FAERS Safety Report 4364200-1 (Version None)
Quarter: 2004Q2

REPORT INFORMATION
  Report Type: 
  Country: None (occurrence: None)
  Receive Date: 20040517
  Receipt Date: 20040303
  Transmission Date: 20050107
  Serious: No
  Sender: FDA-Public Use
  Company Number: S04-USA-01111-01

PATIENT
  Age: 80 Year
  Sex: Female

DRUGS (6)
  1. NAMENDA [Suspect]
     Indication: DEMENTIA ALZHEIMER'S TYPE
     Dosage: 5 MG QD PO
     Route: 048
     Dates: start: 20040218, end: 20040224
  2. NAMENDA [Suspect]
     Indication: DEMENTIA ALZHEIMER'S TYPE
     Dosage: 5 MG BID PO
     Route: 048
     Dates: start: 20040225
  3. ZOCOR [Concomitant]
  4. ZOLOFT [Concomitant]
  5. BLOOD PRESSURE PILL (NOS) [Concomitant]
  6. ROBITUSSIN [Concomitant]

REACTIONS (1)
  - COUGH [None]
